FAERS Safety Report 9909566 (Version 1)
Quarter: 2014Q1

REPORT INFORMATION
  Report Type: Spontaneous
  Country: CO (occurrence: CO)
  Receive Date: 20140219
  Receipt Date: 20140219
  Transmission Date: 20141002
  Serious: Yes (Other)
  Sender: FDA-Public Use
  Company Number: CO-PFIZER INC-2014044403

PATIENT
  Age: 78 Year
  Sex: 0

DRUGS (1)
  1. CARDURAN [Suspect]
     Indication: HYPERTONIC BLADDER
     Dosage: 4 MG, 1X/DAY
     Route: 048
     Dates: start: 201310, end: 201401

REACTIONS (2)
  - Prostatic disorder [Recovered/Resolved]
  - Off label use [Recovered/Resolved]
